FAERS Safety Report 7328006-3 (Version None)
Quarter: 2011Q1

REPORT INFORMATION
  Report Type: 
  Country: None (occurrence: None)
  Receive Date: 20110303
  Receipt Date: 20110222
  Transmission Date: 20110831
  Serious: Yes (Other)
  Sender: FDA-Public Use
  Company Number: CA-JNJFOC-20110207578

PATIENT
  Sex: Female
  Weight: 50.9 kg

DRUGS (5)
  1. IMURAN [Concomitant]
     Dosage: 150 MG OD
     Route: 065
  2. PANETS [Concomitant]
     Route: 065
  3. VITAMIN B-12 [Concomitant]
     Route: 065
  4. REMICADE [Suspect]
     Indication: CROHN'S DISEASE
     Route: 042
  5. YASMIN [Concomitant]
     Route: 065

REACTIONS (1)
  - DEPRESSION [None]
